FAERS Safety Report 6360210-3 (Version None)
Quarter: 2009Q3

REPORT INFORMATION
  Report Type: 
  Country: None (occurrence: None)
  Receive Date: 20090917
  Receipt Date: 20090908
  Transmission Date: 20100115
  Serious: No
  Sender: FDA-Public Use
  Company Number: US-B.I. PHARMACEUTICALS,INC./RIDGEFIELD-2009-BP-10588BP

PATIENT
  Sex: Female

DRUGS (2)
  1. SPIRIVA [Suspect]
     Indication: CHRONIC OBSTRUCTIVE PULMONARY DISEASE
     Dosage: 18 MCG
     Route: 055
     Dates: start: 20090814, end: 20090906
  2. INSULIN [Concomitant]
     Indication: TYPE 2 DIABETES MELLITUS
     Dates: start: 20050301

REACTIONS (2)
  - BLOOD GLUCOSE INCREASED [None]
  - MOUTH HAEMORRHAGE [None]
